FAERS Safety Report 21699849 (Version 1)
Quarter: 2022Q4

REPORT INFORMATION
  Report Type: Spontaneous
  Country: FR (occurrence: FR)
  Receive Date: 20221208
  Receipt Date: 20221208
  Transmission Date: 20230113
  Serious: Yes (Death, Other)
  Sender: FDA-Public Use
  Company Number: None

PATIENT
  Age: 29 Year
  Sex: Female
  Weight: 90 kg

DRUGS (11)
  1. ONDANSETRON [Suspect]
     Active Substance: ONDANSETRON
     Indication: Nausea
     Dates: start: 20220203, end: 20220204
  2. PANTOPRAZOLE [Suspect]
     Active Substance: PANTOPRAZOLE
     Indication: Product used for unknown indication
     Dates: start: 20220203, end: 20220204
  3. ACETAMINOPHEN [Suspect]
     Active Substance: ACETAMINOPHEN
     Indication: Abdominal pain
     Dates: start: 20220202, end: 20220204
  4. PROPRANOLOL HYDROCHLORIDE [Suspect]
     Active Substance: PROPRANOLOL HYDROCHLORIDE
     Indication: Abdominal pain
     Dates: start: 20220204, end: 20220204
  5. METRONIDAZOLE [Suspect]
     Active Substance: METRONIDAZOLE
     Indication: Colitis
     Dates: start: 20220119, end: 20220203
  6. OFLOXACIN [Suspect]
     Active Substance: OFLOXACIN
     Indication: Colitis
     Dates: start: 20220119, end: 20220203
  7. TRIMEBUTINE [Suspect]
     Active Substance: TRIMEBUTINE
     Indication: Abdominal pain
     Dosage: 02/02: 100 MG IV AT 2H40 AND 9H50
     Dates: start: 20220202, end: 20220202
  8. VANCOMYCIN [Suspect]
     Active Substance: VANCOMYCIN
     Indication: Clostridium difficile colitis
     Dates: start: 20220203, end: 20220204
  9. METOCLOPRAMIDE HYDROCHLORIDE [Concomitant]
     Active Substance: METOCLOPRAMIDE HYDROCHLORIDE
     Indication: Nausea
     Dates: start: 20220202, end: 20220202
  10. PHLOROGLUCINOL [Concomitant]
     Active Substance: PHLOROGLUCINOL
     Indication: Abdominal pain
     Dates: start: 20220202, end: 20220202
  11. TRIMEBUTINE [Suspect]
     Active Substance: TRIMEBUTINE
     Indication: Abdominal pain
     Dosage: 100MG IV AT 9H59
     Dates: start: 20220204, end: 20220204

REACTIONS (2)
  - Cardio-respiratory arrest [Fatal]
  - Tachycardia [Recovered/Resolved]

NARRATIVE: CASE EVENT DATE: 20220204
